FAERS Safety Report 6785161-1 (Version None)
Quarter: 2010Q2

REPORT INFORMATION
  Report Type: 
  Country: None (occurrence: None)
  Receive Date: 20100618
  Receipt Date: 20100617
  Transmission Date: 20101027
  Serious: Yes (Hospitalization, Disabling)
  Sender: FDA-Public Use
  Company Number: TPG2010A00081

PATIENT
  Sex: Female

DRUGS (1)
  1. ACTOS [Suspect]
     Indication: DRUG USE FOR UNKNOWN INDICATION
     Dosage: PER ORAL
     Route: 048

REACTIONS (8)
  - DRY SKIN [None]
  - GAIT DISTURBANCE [None]
  - OEDEMA [None]
  - SKIN FISSURES [None]
  - SKIN HAEMORRHAGE [None]
  - SKIN ULCER [None]
  - WEIGHT DECREASED [None]
  - WEIGHT INCREASED [None]
